FAERS Safety Report 13887908 (Version 4)
Quarter: 2017Q4

REPORT INFORMATION
  Report Type: Spontaneous
  Country: FR (occurrence: FR)
  Receive Date: 20170821
  Receipt Date: 20171009
  Transmission Date: 20180320
  Serious: Yes (Hospitalization)
  Sender: FDA-Public Use
  Company Number: FR-TEVA-797292ROM

PATIENT
  Age: 41 Year
  Sex: Female

DRUGS (14)
  1. NAVELBINE [Suspect]
     Active Substance: VINORELBINE TARTRATE
     Indication: B-CELL LYMPHOMA
     Dosage: THIRD-LINE TREATMENT BY GVD PROTOCOL. TAKEN AT DAY 1 AND DAY 8 OF EACH COURSE
     Route: 041
     Dates: start: 20170519, end: 20170713
  2. ARANESP [Concomitant]
     Active Substance: DARBEPOETIN ALFA
  3. BARACLUDE [Concomitant]
     Active Substance: ENTECAVIR
  4. GEMZAR [Suspect]
     Active Substance: GEMCITABINE HYDROCHLORIDE
     Indication: B-CELL LYMPHOMA
     Dosage: THIRD-LINE TREATMENT BY GVD PROTOCOL. TAKEN AT DAY 1 AND DAY 8 OF EACH COURSE
     Route: 041
     Dates: start: 20170519, end: 20170713
  5. PROGRAF [Concomitant]
     Active Substance: TACROLIMUS\TACROLIMUS ANHYDROUS
  6. BACTRIM [Concomitant]
     Active Substance: SULFAMETHOXAZOLE\TRIMETHOPRIM
  7. UVEDOSE [Concomitant]
     Active Substance: CHOLECALCIFEROL
  8. DOXORUBICINE TEVA 200 MG/100 ML [Suspect]
     Active Substance: DOXORUBICIN
     Indication: B-CELL LYMPHOMA
     Dosage: THIRD-LINE TREATMENT BY GVD PROTOCOL. TAKEN AT DAY 1 AND DAY 8 OF EACH COURSE
     Route: 041
     Dates: start: 20170519, end: 20170713
  9. SOLUPRED [Concomitant]
     Active Substance: PREDNISOLONE
  10. INEXIUM [Concomitant]
     Active Substance: ESOMEPRAZOLE
  11. ZELITREX [Concomitant]
     Active Substance: VALACYCLOVIR HYDROCHLORIDE
  12. PARACETAMOL [Concomitant]
     Active Substance: ACETAMINOPHEN
  13. FOLINORAL [Concomitant]
     Active Substance: LEUCOVORIN CALCIUM
  14. MIMPARA [Concomitant]
     Active Substance: CINACALCET HYDROCHLORIDE

REACTIONS (5)
  - Mucosal inflammation [Recovered/Resolved]
  - Proteinuria [Not Recovered/Not Resolved]
  - Thrombocytopenia [Recovered/Resolved]
  - Agranulocytosis [Recovered/Resolved]
  - Acute kidney injury [Not Recovered/Not Resolved]

NARRATIVE: CASE EVENT DATE: 20170601
